FAERS Safety Report 5549511-6 (Version None)
Quarter: 2007Q4

REPORT INFORMATION
  Report Type: 
  Country: None (occurrence: None)
  Receive Date: 20071212
  Receipt Date: 20071206
  Transmission Date: 20080405
  Serious: Yes (Death)
  Sender: FDA-Public Use
  Company Number: PHBS2007AT20577

PATIENT
  Age: 62 Year
  Sex: Male

DRUGS (6)
  1. CYCLOSPORINE [Suspect]
     Indication: LUNG TRANSPLANT
     Route: 065
  2. BASILIXIMAB [Suspect]
     Indication: LUNG TRANSPLANT
     Route: 065
  3. MYCOPHENOLATE MOFETIL [Suspect]
     Indication: LUNG TRANSPLANT
     Route: 065
  4. STEROIDS NOS [Suspect]
     Indication: LUNG TRANSPLANT
     Route: 065
  5. CEFEPIME [Concomitant]
  6. GANCICLOVIR [Concomitant]

REACTIONS (15)
  - ABDOMINAL PAIN [None]
  - ACUTE ABDOMEN [None]
  - CHOLECYSTITIS [None]
  - CLOSTRIDIUM DIFFICILE COLITIS [None]
  - CLOSTRIDIUM DIFFICILE TOXIN TEST POSITIVE [None]
  - COLECTOMY [None]
  - DIARRHOEA [None]
  - ILEOSTOMY [None]
  - INFECTION [None]
  - LARGE INTESTINE ANASTOMOSIS [None]
  - LARGE INTESTINE PERFORATION [None]
  - MULTI-ORGAN FAILURE [None]
  - PERITONITIS [None]
  - PNEUMONIA [None]
  - WOUND INFECTION [None]
